FAERS Safety Report 17281961 (Version 2)
Quarter: 2020Q1

REPORT INFORMATION
  Report Type: Other
  Country: PT (occurrence: PT)
  Receive Date: 20200117
  Receipt Date: 20200206
  Transmission Date: 20200409
  Serious: Yes (Hospitalization, Other)
  Sender: FDA-Public Use
  Company Number: PT-IPCA LABORATORIES LIMITED-IPC-2020-PT-000035

PATIENT

DRUGS (2)
  1. MOXIFLOXACIN. [Concomitant]
     Active Substance: MOXIFLOXACIN
     Indication: RESPIRATORY TRACT INFECTION
     Dosage: UNK
     Route: 065
  2. CETIRIZINE [Suspect]
     Active Substance: CETIRIZINE HYDROCHLORIDE
     Indication: RESPIRATORY TRACT INFECTION
     Dosage: UNK
     Route: 065

REACTIONS (2)
  - Confusional state [Recovered/Resolved]
  - Loss of consciousness [Recovered/Resolved]

NARRATIVE: CASE EVENT DATE: 20170124
